FAERS Safety Report 21341557 (Version 1)
Quarter: 2022Q3

REPORT INFORMATION
  Report Type: Report from Study
  Country: US (occurrence: US)
  Receive Date: 20220916
  Receipt Date: 20220916
  Transmission Date: 20221026
  Serious: Yes (Hospitalization, Other)
  Sender: FDA-Public Use
  Company Number: US-GILEAD-2022-0596814

PATIENT
  Age: 39 Year
  Sex: Female
  Weight: 48.98 kg

DRUGS (1)
  1. AMBRISENTAN [Suspect]
     Active Substance: AMBRISENTAN
     Indication: Pulmonary hypertension
     Dosage: 10 MG, QD
     Route: 048
     Dates: start: 20170126

REACTIONS (1)
  - Pelvic haemorrhage [Unknown]

NARRATIVE: CASE EVENT DATE: 20211106
